FAERS Safety Report 8442962-1 (Version None)
Quarter: 2012Q2

REPORT INFORMATION
  Report Type: 
  Country: None (occurrence: None)
  Receive Date: 20120615
  Receipt Date: 20120612
  Transmission Date: 20120825
  Serious: Yes (Other)
  Sender: FDA-Public Use
  Company Number: ES-ELI_LILLY_AND_COMPANY-ES201205008683

PATIENT
  Sex: Female

DRUGS (2)
  1. ENOXAPARIN SODIUM [Concomitant]
  2. FORTEO [Suspect]
     Dosage: UNK
     Dates: start: 20110901

REACTIONS (2)
  - ARRHYTHMIA [None]
  - TACHYCARDIA [None]
